FAERS Safety Report 7360632-8 (Version None)
Quarter: 2011Q1

REPORT INFORMATION
  Report Type: 
  Country: None (occurrence: None)
  Receive Date: 20110318
  Receipt Date: 20100909
  Transmission Date: 20110831
  Serious: Yes (Other)
  Sender: FDA-Public Use
  Company Number: US-BAYER-201012280NA

PATIENT
  Sex: Female
  Weight: 74.83 kg

DRUGS (8)
  1. OCELLA [Suspect]
     Indication: CONTRACEPTION
     Dosage: UNK UNK, QD
     Dates: start: 20050101, end: 20090101
  2. OCELLA [Suspect]
     Indication: ACNE
  3. YASMIN [Suspect]
     Indication: CONTRACEPTION
     Dosage: UNK UNK, QD
     Dates: start: 20050101, end: 20090101
  4. AMITRIPTYLINE HCL [Concomitant]
     Dosage: 25 MG, UNK
     Route: 048
  5. YASMIN [Suspect]
     Indication: ACNE
  6. UNCODEABLE ^UNCLASSIFIABLE^ [Concomitant]
     Dosage: 40 MG, UNK
     Route: 048
  7. UNCODEABLE ^UNCLASSIFIABLE^ [Concomitant]
  8. IMITREX [Concomitant]
     Dosage: 100 MG, UNK
     Route: 048

REACTIONS (8)
  - GASTROOESOPHAGEAL REFLUX DISEASE [None]
  - GALLBLADDER DISORDER [None]
  - PAIN [None]
  - NAUSEA [None]
  - VOMITING [None]
  - ABDOMINAL PAIN UPPER [None]
  - CHOLECYSTITIS CHRONIC [None]
  - CHOLELITHIASIS [None]
